FAERS Safety Report 24180488 (Version 1)
Quarter: 2024Q3

REPORT INFORMATION
  Report Type: Spontaneous
  Country: US (occurrence: US)
  Receive Date: 20240806
  Receipt Date: 20240806
  Transmission Date: 20241016
  Serious: No
  Sender: DR REDDYS
  Company Number: US-DRL-USA-LIT/USA/24/0011194

PATIENT
  Age: 39 Year
  Sex: Male

DRUGS (4)
  1. TADALAFIL [Suspect]
     Active Substance: TADALAFIL
     Indication: Painful erection
     Dosage: 2.5 TO 5MG OF TADALAFIL NIGHTLY
     Dates: start: 202009
  2. IMIPRAMINE [Concomitant]
     Active Substance: IMIPRAMINE
     Indication: Painful erection
     Dates: start: 202003
  3. IMIPRAMINE [Concomitant]
     Active Substance: IMIPRAMINE
  4. CLONAZEPAM [Concomitant]
     Active Substance: CLONAZEPAM
     Indication: Painful erection
     Dosage: 0.25 MG OF CLONAZEPAM NIGHTLY
     Dates: start: 202003

REACTIONS (1)
  - Drug ineffective for unapproved indication [Unknown]
